FAERS Safety Report 9202549 (Version 1)
Quarter: 2013Q2

REPORT INFORMATION
  Report Type: Spontaneous
  Country: US (occurrence: US)
  Receive Date: 20130401
  Receipt Date: 20130401
  Transmission Date: 20140414
  Serious: Yes (Disabling, Other)
  Sender: FDA-Public Use
  Company Number: US-ASTRAZENECA-2013SE19372

PATIENT
  Age: 62 Year
  Sex: Female
  Weight: 68.9 kg

DRUGS (8)
  1. OMEPRAZOLE [Suspect]
     Indication: GASTROOESOPHAGEAL REFLUX DISEASE
     Route: 048
     Dates: end: 20130205
  2. CRESTOR [Suspect]
     Indication: BLOOD CHOLESTEROL INCREASED
     Route: 048
  3. PROTONIX [Suspect]
     Indication: GASTROOESOPHAGEAL REFLUX DISEASE
     Route: 048
  4. LOPID [Suspect]
     Indication: BLOOD CHOLESTEROL INCREASED
     Route: 048
  5. DIOVAN [Concomitant]
     Indication: HYPERTENSION
     Route: 048
  6. LEVOTHYROXINE [Concomitant]
     Route: 048
  7. XANAX [Concomitant]
  8. POTASSIUM [Concomitant]

REACTIONS (13)
  - Hypothyroidism [Unknown]
  - Gastrooesophageal reflux disease [Not Recovered/Not Resolved]
  - Back disorder [Unknown]
  - Gait disturbance [Unknown]
  - Back pain [Unknown]
  - Pulmonary congestion [Unknown]
  - Choking sensation [Not Recovered/Not Resolved]
  - Musculoskeletal disorder [Unknown]
  - Pain [Unknown]
  - Abdominal distension [Unknown]
  - Fatigue [Unknown]
  - Malaise [Unknown]
  - Abdominal discomfort [Unknown]
